FAERS Safety Report 21730706 (Version 1)
Quarter: 2022Q4

REPORT INFORMATION
  Report Type: Spontaneous
  Country: US (occurrence: US)
  Receive Date: 20221215
  Receipt Date: 20221215
  Transmission Date: 20230113
  Serious: No
  Sender: FDA-Public Use
  Company Number: US-PRINSTON PHARMACEUTICAL INC.-2022PRN00260

PATIENT
  Sex: Male

DRUGS (3)
  1. RISPERIDONE [Suspect]
     Active Substance: RISPERIDONE
     Indication: Muscle tightness
     Dosage: UNK
     Dates: start: 20220322, end: 20220905
  2. RISPERIDONE [Suspect]
     Active Substance: RISPERIDONE
     Indication: Muscle relaxant therapy
  3. RISPERIDONE [Suspect]
     Active Substance: RISPERIDONE
     Indication: Stress

REACTIONS (4)
  - Muscle strain [Not Recovered/Not Resolved]
  - Muscular weakness [Not Recovered/Not Resolved]
  - Muscle tightness [Not Recovered/Not Resolved]
  - Drug ineffective for unapproved indication [Recovered/Resolved]

NARRATIVE: CASE EVENT DATE: 20220101
